FAERS Safety Report 5677559-X (Version None)
Quarter: 2008Q1

REPORT INFORMATION
  Report Type: 
  Country: None (occurrence: None)
  Receive Date: 20080324
  Receipt Date: 20080312
  Transmission Date: 20080703
  Serious: Yes (Other)
  Sender: FDA-Public Use
  Company Number: AU-ROCHE-552694

PATIENT
  Age: 36 Year
  Sex: Male

DRUGS (1)
  1. PEGASYS [Suspect]
     Indication: HEPATITIS C
     Dosage: THE PATIENT REQUIRED DOSE MODIFICATIONS OF PEG INTERFERON ALFA 2A AND RIBAVIRIN.
     Route: 065
     Dates: start: 20070901

REACTIONS (4)
  - ANAEMIA [None]
  - BONE MARROW FAILURE [None]
  - PARVOVIRUS INFECTION [None]
  - RESPIRATORY TRACT INFECTION [None]
